FAERS Safety Report 21642703 (Version 1)
Quarter: 2022Q4

REPORT INFORMATION
  Report Type: Spontaneous
  Country: DE (occurrence: None)
  Receive Date: 20221125
  Receipt Date: 20221125
  Transmission Date: 20230113
  Serious: Yes (Other)
  Sender: FDA-Public Use
  Company Number: 2022A385549

PATIENT
  Age: 69 Year
  Sex: Female

DRUGS (9)
  1. DAPAGLIFLOZIN [Suspect]
     Active Substance: DAPAGLIFLOZIN
     Route: 048
     Dates: start: 202211
  2. ASPIRIN [Concomitant]
     Active Substance: ASPIRIN
  3. BISOPROLOL [Concomitant]
     Active Substance: BISOPROLOL
     Dosage: 10 MG 1 / 2-0-1 / 2
  4. CANDESARTAN [Concomitant]
     Active Substance: CANDESARTAN
     Dosage: 16 MG 1-0-1 / 2
  5. ALDACTONE [Concomitant]
     Active Substance: SPIRONOLACTONE
     Dosage: 25 MG 1-0-0 MON / WED / FRI, IF NECESSARY ON DAILY INCREASE
  6. NOVODIGAL [Concomitant]
  7. JANUMET [Concomitant]
     Active Substance: METFORMIN HYDROCHLORIDE\SITAGLIPTIN PHOSPHATE
     Dosage: 50/850 MG 1-0-1
  8. ATORIMIB [Concomitant]
     Dosage: 10/40 MG 0-0-1
  9. MARCUMAR [Concomitant]
     Active Substance: PHENPROCOUMON

REACTIONS (2)
  - Pleural effusion [Unknown]
  - Ejection fraction decreased [Unknown]
